FAERS Safety Report 6241744 (Version 13)
Quarter: 2014Q3

REPORT INFORMATION
  Report Type: Spontaneous
  Country: US (occurrence: US)
  Receive Date: 20060113
  Receipt Date: 20140819
  Transmission Date: 20150326
  Serious: Yes (Disabling, Other)
  Sender: FDA-Public Use
  Company Number: US-PFIZER INC-2006002584

PATIENT
  Age: 57 Year
  Sex: Female
  Weight: 57.6 kg

DRUGS (9)
  1. CELEBREX [Suspect]
     Active Substance: CELECOXIB
     Indication: PAIN
     Dosage: UNK
     Dates: start: 200608, end: 200608
  2. VALIUM [Concomitant]
     Active Substance: DIAZEPAM
  3. LYRICA [Suspect]
     Active Substance: PREGABALIN
     Dosage: UNK
  4. HYDROCHLOROTHIAZIDE. [Concomitant]
     Active Substance: HYDROCHLOROTHIAZIDE
  5. ZOCOR [Concomitant]
     Active Substance: SIMVASTATIN
     Dates: end: 2005
  6. DEPO-MEDROL [Suspect]
     Active Substance: METHYLPREDNISOLONE ACETATE
     Indication: SCIATICA
     Dosage: 80 MG, 1X/DAY
     Route: 008
     Dates: start: 20000126
  7. BEXTRA [Suspect]
     Active Substance: VALDECOXIB
     Indication: PAIN
     Dosage: UNK
  8. NEURONTIN [Suspect]
     Active Substance: GABAPENTIN
     Indication: SCIATICA
     Dosage: 300 MG, 3X/DAY
  9. PREMARIN [Concomitant]
     Active Substance: ESTROGENS, CONJUGATED
     Dates: start: 1970, end: 2005

REACTIONS (43)
  - Nose deformity [Not Recovered/Not Resolved]
  - Drug ineffective [Unknown]
  - Depression [Not Recovered/Not Resolved]
  - Agitation [Unknown]
  - Somnolence [Unknown]
  - Headache [Not Recovered/Not Resolved]
  - Anxiety [Not Recovered/Not Resolved]
  - Blood cholesterol increased [Not Recovered/Not Resolved]
  - Muscle spasms [Unknown]
  - Pain in extremity [Unknown]
  - Thrombosis [Unknown]
  - Impaired work ability [Unknown]
  - Muscle spasms [Unknown]
  - Back pain [Not Recovered/Not Resolved]
  - Vomiting [Unknown]
  - Hypoaesthesia [Unknown]
  - Paralysis [Not Recovered/Not Resolved]
  - Weight increased [Recovering/Resolving]
  - Confusional state [Unknown]
  - Blood pressure increased [Unknown]
  - Functional gastrointestinal disorder [Unknown]
  - Incorrect route of drug administration [Not Recovered/Not Resolved]
  - Abasia [Not Recovered/Not Resolved]
  - Burning sensation [Not Recovered/Not Resolved]
  - Spinal disorder [Not Recovered/Not Resolved]
  - Nerve injury [Unknown]
  - White blood cell count increased [Unknown]
  - Hepatic enzyme increased [Unknown]
  - Fluid retention [Recovering/Resolving]
  - Pain [Not Recovered/Not Resolved]
  - Speech disorder [Unknown]
  - Insomnia [Not Recovered/Not Resolved]
  - Decreased appetite [Not Recovered/Not Resolved]
  - Dehydration [Unknown]
  - Face injury [Unknown]
  - Blister [Unknown]
  - Nausea [Unknown]
  - Visual impairment [Unknown]
  - Arachnoiditis [Not Recovered/Not Resolved]
  - Muscle tightness [Unknown]
  - Pain in extremity [Not Recovered/Not Resolved]
  - Dysuria [Unknown]
  - Rhinorrhoea [Unknown]

NARRATIVE: CASE EVENT DATE: 2000
